FAERS Safety Report 6748557-X (Version None)
Quarter: 2010Q2

REPORT INFORMATION
  Report Type: 
  Country: None (occurrence: None)
  Receive Date: 20100601
  Receipt Date: 20100520
  Transmission Date: 20101027
  Serious: Yes (Other)
  Sender: FDA-Public Use
  Company Number: US-BAYER-201014568NA

PATIENT
  Age: 29 Year
  Sex: Female
  Weight: 67 kg

DRUGS (3)
  1. MIRENA [Suspect]
     Indication: CONTRACEPTION
     Dosage: FREQUENCY: CONTINUOUS
     Route: 015
     Dates: start: 20090102, end: 20100217
  2. ZOLOFT [Concomitant]
     Indication: DEPRESSION
     Route: 048
  3. SLOW FE [Concomitant]
     Indication: ANAEMIA
     Route: 048

REACTIONS (3)
  - ABDOMINAL PAIN [None]
  - RUPTURED ECTOPIC PREGNANCY [None]
  - VAGINAL HAEMORRHAGE [None]
